FAERS Safety Report 5123739-1 (Version None)
Quarter: 2006Q3

REPORT INFORMATION
  Report Type: 
  Country: None (occurrence: None)
  Receive Date: 20060811
  Receipt Date: 20060518
  Transmission Date: 20061208
  Serious: No
  Sender: FDA-Public Use
  Company Number: S06-USA-02012-01

PATIENT
  Sex: Male

DRUGS (1)
  1. NAMENDA [Suspect]

REACTIONS (1)
  - SOMNOLENCE [None]
